FAERS Safety Report 21445710 (Version 1)
Quarter: 2022Q4

REPORT INFORMATION
  Report Type: Spontaneous
  Country: US (occurrence: US)
  Receive Date: 20221012
  Receipt Date: 20221012
  Transmission Date: 20230113
  Serious: No
  Sender: FDA-Public Use
  Company Number: US-ORGANON-O2209USA001428

PATIENT
  Age: 44 Year
  Sex: Female

DRUGS (2)
  1. PREGNYL [Suspect]
     Active Substance: CHORIOGONADOTROPIN ALFA
     Indication: Weight decreased
     Dosage: UNK
     Route: 058
     Dates: start: 20220905
  2. STERILE WATER [Suspect]
     Active Substance: WATER
     Dosage: UNK
     Route: 058

REACTIONS (6)
  - Diarrhoea [Not Recovered/Not Resolved]
  - Nausea [Not Recovered/Not Resolved]
  - Product prescribing issue [Unknown]
  - Product use in unapproved indication [Unknown]
  - Drug ineffective for unapproved indication [Unknown]
  - Product preparation issue [Unknown]

NARRATIVE: CASE EVENT DATE: 20220901
